FAERS Safety Report 9926883 (Version 1)
Quarter: 2014Q1

REPORT INFORMATION
  Report Type: Spontaneous
  Country: US (occurrence: US)
  Receive Date: 20140226
  Receipt Date: 20140226
  Transmission Date: 20141002
  Serious: No
  Sender: FDA-Public Use
  Company Number: US-AMGEN-USASP2013080642

PATIENT
  Age: 43 Year
  Sex: Female
  Weight: 99.77 kg

DRUGS (3)
  1. ENBREL [Suspect]
     Indication: PRODUCT USED FOR UNKNOWN INDICATION
     Dosage: 50 MG, QWK
     Route: 058
  2. LITHIUM CARBONATE [Concomitant]
     Dosage: 150 MG, UNK
  3. LAMICTAL [Concomitant]
     Dosage: 100 MG, UNK

REACTIONS (5)
  - Nausea [Unknown]
  - Vomiting [Unknown]
  - Abdominal discomfort [Unknown]
  - Nasal congestion [Unknown]
  - Nasopharyngitis [Unknown]
